FAERS Safety Report 24163425 (Version 1)
Quarter: 2024Q3

REPORT INFORMATION
  Report Type: Spontaneous
  Country: US (occurrence: None)
  Receive Date: 20240801
  Receipt Date: 20240801
  Transmission Date: 20241016
  Serious: Yes (Life-Threatening, Hospitalization)
  Sender: Public
  Company Number: None

PATIENT
  Age: 41 Year
  Sex: Male
  Weight: 100.9 kg

DRUGS (1)
  1. HERBALS\TETRAHYDROCANNABIPHOROL [Suspect]
     Active Substance: HERBALS\TETRAHYDROCANNABIPHOROL
     Indication: Substance use
     Dosage: OTHER FREQUENCY : ONCE;?
     Route: 048
     Dates: start: 20240717, end: 20240717

REACTIONS (4)
  - Thinking abnormal [None]
  - Hallucination [None]
  - Dysphoria [None]
  - Intentional self-injury [None]

NARRATIVE: CASE EVENT DATE: 20240720
